FAERS Safety Report 7885481-3 (Version None)
Quarter: 2011Q4

REPORT INFORMATION
  Report Type: 
  Country: None (occurrence: None)
  Receive Date: 20111102
  Receipt Date: 20111024
  Transmission Date: 20120403
  Serious: Yes (Death)
  Sender: FDA-Public Use
  Company Number: JP-CELGENEUS-087-50794-11090606

PATIENT
  Sex: Male
  Weight: 68 kg

DRUGS (5)
  1. PLATELETS [Concomitant]
     Route: 041
  2. PLASMA [Concomitant]
     Route: 041
  3. VIDAZA [Suspect]
     Dosage: 75 MILLIGRAM/SQ. METER
     Route: 041
     Dates: start: 20110819, end: 20110825
  4. RED BLOOD CELLS [Concomitant]
     Route: 041
  5. VIDAZA [Suspect]
     Indication: MYELODYSPLASTIC SYNDROME
     Dosage: 75 MILLIGRAM/SQ. METER
     Route: 041
     Dates: start: 20110727, end: 20110802

REACTIONS (1)
  - GASTROINTESTINAL HAEMORRHAGE [None]
